FAERS Safety Report 5354161-0 (Version None)
Quarter: 2007Q2

REPORT INFORMATION
  Report Type: 
  Country: None (occurrence: None)
  Receive Date: 20070612
  Receipt Date: 20070530
  Transmission Date: 20071010
  Serious: Yes (Hospitalization)
  Sender: FDA-Public Use
  Company Number: US-ELI_LILLY_AND_COMPANY-US200705005983

PATIENT
  Sex: Female

DRUGS (1)
  1. BYETTA [Suspect]
     Dates: start: 20070401

REACTIONS (1)
  - APLASTIC ANAEMIA [None]
